FAERS Safety Report 7392915-X (Version None)
Quarter: 2011Q2

REPORT INFORMATION
  Report Type: 
  Country: None (occurrence: None)
  Receive Date: 20110404
  Receipt Date: 20110325
  Transmission Date: 20111010
  Serious: Yes (Hospitalization)
  Sender: FDA-Public Use
  Company Number: US-ASTRAZENECA-2011SE17128

PATIENT
  Age: 79 Year
  Sex: Female
  Weight: 90.7 kg

DRUGS (2)
  1. ARIMIDEX [Suspect]
     Indication: BREAST CANCER
     Route: 048
  2. LISINOPRIL [Concomitant]

REACTIONS (2)
  - BRONCHITIS [None]
  - PNEUMONIA [None]
